FAERS Safety Report 21439816 (Version 1)
Quarter: 2022Q4

REPORT INFORMATION
  Report Type: Spontaneous
  Country: US (occurrence: None)
  Receive Date: 20221009
  Receipt Date: 20221009
  Transmission Date: 20230113
  Serious: Yes (Hospitalization)
  Sender: FDA-Public Use
  Company Number: None

PATIENT
  Age: 46 Year
  Sex: Female
  Weight: 74.25 kg

DRUGS (1)
  1. FLONASE [Suspect]
     Active Substance: FLUTICASONE PROPIONATE
     Indication: Dizziness
     Dosage: FREQUENCY : DAILY;?OTHER ROUTE : NOSTRILS;?
     Route: 050
     Dates: start: 20220419, end: 20220708

REACTIONS (5)
  - Heart rate increased [None]
  - Confusional state [None]
  - Feeling cold [None]
  - Tremor [None]
  - Diarrhoea [None]

NARRATIVE: CASE EVENT DATE: 20220420
